FAERS Safety Report 12526944 (Version 3)
Quarter: 2016Q4

REPORT INFORMATION
  Report Type: Spontaneous
  Country: US (occurrence: US)
  Receive Date: 20160705
  Receipt Date: 20161110
  Transmission Date: 20170207
  Serious: No
  Sender: FDA-Public Use
  Company Number: US-GLAXOSMITHKLINE-US2016088987

PATIENT
  Age: 67 Year
  Sex: Female

DRUGS (1)
  1. ZANTAC [Suspect]
     Active Substance: RANITIDINE HYDROCHLORIDE
     Indication: MAST CELL ACTIVATION SYNDROME
     Dosage: 150 MG, BID
     Route: 048
     Dates: start: 20151227, end: 20160323

REACTIONS (5)
  - Mobility decreased [Recovered/Resolved]
  - Muscle tightness [Recovered/Resolved]
  - Red blood cell sedimentation rate increased [Recovered/Resolved]
  - Myalgia [Recovered/Resolved]
  - Liver function test increased [Recovered/Resolved]

NARRATIVE: CASE EVENT DATE: 20160314
